FAERS Safety Report 22263841 (Version 1)
Quarter: 2023Q2

REPORT INFORMATION
  Report Type: Spontaneous
  Country: IT (occurrence: IT)
  Receive Date: 20230428
  Receipt Date: 20230428
  Transmission Date: 20230722
  Serious: Yes (Hospitalization)
  Sender: FDA-Public Use
  Company Number: None

PATIENT
  Age: 55 Year
  Sex: Female

DRUGS (3)
  1. CISPLATIN [Suspect]
     Active Substance: CISPLATIN
     Indication: Squamous cell carcinoma of the oral cavity
     Dosage: CISPLATINO TEVA ITALIA , 02/16/2023: 120 MG BY IV INFUSION (INDUCTION-1ST CYCLE) 03/09/2023: 100 MG
     Route: 042
     Dates: start: 20230216, end: 20230309
  2. FLUOROURACIL [Concomitant]
     Active Substance: FLUOROURACIL
     Indication: Squamous cell carcinoma of the oral cavity
     Dosage: FLUOROURACIL HIKMA 6240 MG BY IV INFUSION FOR 96 H (1ST CYCLE INDICATION), FLUOROURACIL HIKMA 5200 M
     Route: 042
     Dates: start: 20230216, end: 20230309
  3. DOCETAXEL [Concomitant]
     Active Substance: DOCETAXEL
     Indication: Squamous cell carcinoma of the oral cavity
     Dosage: 02/16/2023: 120 MG BY IV INFUSION (INDUCTION-1ST CYCLE), 03/09/2023: 100 MG BY IV INFUSION (II CYCLE
     Route: 042
     Dates: start: 20230216, end: 20230309

REACTIONS (5)
  - Stoma site inflammation [Recovering/Resolving]
  - Palmar-plantar erythrodysaesthesia syndrome [Recovering/Resolving]
  - Dehydration [Recovered/Resolved]
  - Overflow diarrhoea [Recovered/Resolved]
  - Blood creatinine increased [Recovered/Resolved]

NARRATIVE: CASE EVENT DATE: 20230301
